FAERS Safety Report 10598282 (Version 1)
Quarter: 2014Q4

REPORT INFORMATION
  Report Type: Spontaneous
  Country: US (occurrence: None)
  Receive Date: 20141113
  Receipt Date: 20141113
  Transmission Date: 20150529
  Serious: No
  Sender: FDA-Public Use
  Company Number: A1088872A

PATIENT
  Age: 46 Year
  Sex: Male

DRUGS (2)
  1. TIVICAY [Suspect]
     Active Substance: DOLUTEGRAVIR SODIUM
     Indication: HIV INFECTION
     Route: 048
     Dates: start: 2014
  2. EPZICOM (ABACAVIR + LAMIVUDINE) UNKNOWN [Concomitant]

REACTIONS (3)
  - Blood creatinine increased [None]
  - Protein urine present [None]
  - Glomerular filtration rate decreased [None]

NARRATIVE: CASE EVENT DATE: 201406
